FAERS Safety Report 9689214 (Version 5)
Quarter: 2013Q4

REPORT INFORMATION
  Report Type: Spontaneous
  Country: JP (occurrence: JP)
  Receive Date: 20131114
  Receipt Date: 20131230
  Transmission Date: 20140711
  Serious: Yes (Hospitalization)
  Sender: FDA-Public Use
  Company Number: JP-PFIZER INC-2013325547

PATIENT
  Age: 49 Year
  Sex: Male

DRUGS (4)
  1. CELECOX [Suspect]
     Indication: RHEUMATOID ARTHRITIS
     Dosage: 400 MG, DAILY
     Route: 048
     Dates: start: 20130726, end: 20131107
  2. AZULFIDINE EN [Concomitant]
     Indication: RHEUMATOID ARTHRITIS
     Dosage: 1000MG, DAILY
     Route: 048
     Dates: start: 20130726, end: 20131107
  3. CIMETIDINE [Concomitant]
     Dosage: UNK
     Dates: end: 20131107
  4. DICLOFENAC NA [Concomitant]
     Dosage: UNK
     Dates: end: 20131107

REACTIONS (2)
  - Skin ulcer [Recovered/Resolved]
  - Erythema [Recovered/Resolved]
